FAERS Safety Report 6227547-X (Version None)
Quarter: 2009Q2

REPORT INFORMATION
  Report Type: 
  Country: None (occurrence: None)
  Receive Date: 20090612
  Receipt Date: 20090601
  Transmission Date: 20091009
  Serious: Yes (Other)
  Sender: FDA-Public Use
  Company Number: JP-PFIZER INC-2009221978

PATIENT
  Age: 72 Year

DRUGS (5)
  1. ZITHROMAC SR [Suspect]
     Indication: PNEUMONIA
     Dosage: 2 G, 1X/DAY
     Route: 048
     Dates: start: 20090518, end: 20090518
  2. FLAVERIC [Suspect]
     Dosage: UNK
     Route: 048
     Dates: start: 20090518
  3. MUCOSTA [Suspect]
     Dosage: UNK
     Route: 048
     Dates: start: 20090518
  4. METHISTA [Suspect]
     Dosage: UNK
     Route: 048
     Dates: start: 20090518
  5. HOKUNALIN [Suspect]
     Dosage: UNK
     Route: 062
     Dates: start: 20090518, end: 20090522

REACTIONS (1)
  - PLATELET COUNT INCREASED [None]
